FAERS Safety Report 12501160 (Version 9)
Quarter: 2016Q3

REPORT INFORMATION
  Report Type: Report from Study
  Country: IE (occurrence: IE)
  Receive Date: 20160627
  Receipt Date: 20160824
  Transmission Date: 20161109
  Serious: Yes (Hospitalization)
  Sender: FDA-Public Use
  Company Number: IE-ABBVIE-16P-229-1660403-00

PATIENT
  Age: 67 Year
  Sex: Female

DRUGS (13)
  1. DUODOPA [Suspect]
     Active Substance: CARBIDOPA\LEVODOPA
     Dosage: CONTINUOUS DOSE 1.7 ML/H
     Route: 050
     Dates: start: 201606, end: 20160624
  2. DUODOPA [Suspect]
     Active Substance: CARBIDOPA\LEVODOPA
     Dosage: MORNING DOSE 5.5ML
     Route: 050
     Dates: start: 20160802, end: 20160816
  3. DUODOPA [Suspect]
     Active Substance: CARBIDOPA\LEVODOPA
     Dosage: CONTINUOUS DOSE 1.8 ML/H
     Route: 050
     Dates: start: 20160624, end: 20160704
  4. DUODOPA [Suspect]
     Active Substance: CARBIDOPA\LEVODOPA
     Dosage: EXTRA DOSE 0.5 ML
     Route: 050
     Dates: start: 20160705, end: 20160715
  5. DUODOPA [Suspect]
     Active Substance: CARBIDOPA\LEVODOPA
     Dosage: CONTINUOUS DOSE 2 ML/H; EXTRA DOSE 0.6 ML
     Route: 050
     Dates: start: 20160715, end: 20160725
  6. DUODOPA [Suspect]
     Active Substance: CARBIDOPA\LEVODOPA
     Dosage: CONTINUOUS DOSE 2.2 ML/H; EXTRA DOSE 0.7 ML
     Route: 050
     Dates: start: 20160725, end: 20160727
  7. DUODOPA [Suspect]
     Active Substance: CARBIDOPA\LEVODOPA
     Dosage: CONTINUOUS DOSE 1.9 ML/H
     Route: 050
     Dates: start: 20160704, end: 20160715
  8. DUODOPA [Suspect]
     Active Substance: CARBIDOPA\LEVODOPA
     Dosage: CONTINUOUS DOSE 2.4 ML/H
     Route: 050
     Dates: start: 20160727
  9. DUODOPA [Suspect]
     Active Substance: CARBIDOPA\LEVODOPA
     Dosage: MORNING DOSE 6 ML; EXTRA DOSE 0.8 ML PRN
     Route: 050
     Dates: start: 20160816
  10. DUODOPA [Suspect]
     Active Substance: CARBIDOPA\LEVODOPA
     Dosage: EXTRA DOSE 0.7 ML
     Route: 050
     Dates: start: 20160725, end: 20160816
  11. METOCOR [Concomitant]
     Active Substance: METOPROLOL TARTRATE
     Indication: PRODUCT USED FOR UNKNOWN INDICATION
     Route: 050
  12. DUODOPA [Suspect]
     Active Substance: CARBIDOPA\LEVODOPA
     Indication: PARKINSON^S DISEASE
     Dosage: CASSETTE
     Route: 050
     Dates: start: 20160614
  13. DUODOPA [Suspect]
     Active Substance: CARBIDOPA\LEVODOPA
     Dosage: MORNING DOSE 5.3ML
     Route: 050
     Dates: start: 2016, end: 20160802

REACTIONS (3)
  - On and off phenomenon [Not Recovered/Not Resolved]
  - Blood pressure increased [Not Recovered/Not Resolved]
  - Drug effect incomplete [Unknown]

NARRATIVE: CASE EVENT DATE: 201606
